FAERS Safety Report 20833824 (Version 1)
Quarter: 2022Q2

REPORT INFORMATION
  Report Type: Spontaneous
  Country: US (occurrence: US)
  Receive Date: 20220516
  Receipt Date: 20220516
  Transmission Date: 20220721
  Serious: Yes (Other)
  Sender: FDA-Public Use
  Company Number: US-PFIZER INC-202200682063

PATIENT
  Age: 33 Year
  Sex: Female

DRUGS (1)
  1. XELJANZ XR [Suspect]
     Active Substance: TOFACITINIB CITRATE
     Dosage: 22 MG, DAILY
     Route: 048
     Dates: start: 202109

REACTIONS (7)
  - Colitis ulcerative [Unknown]
  - Arthralgia [Not Recovered/Not Resolved]
  - Musculoskeletal stiffness [Unknown]
  - Peripheral swelling [Unknown]
  - Sensitivity to weather change [Unknown]
  - Diarrhoea [Unknown]
  - Condition aggravated [Not Recovered/Not Resolved]
